FAERS Safety Report 9596410 (Version 1)
Quarter: 2013Q4

REPORT INFORMATION
  Report Type: Report from Study
  Country: US (occurrence: US)
  Receive Date: 20131004
  Receipt Date: 20131004
  Transmission Date: 20140711
  Serious: Yes (Hospitalization)
  Sender: FDA-Public Use
  Company Number: US-JNJFOC-20130916542

PATIENT
  Age: 51 Year
  Sex: Female
  Weight: 72.58 kg

DRUGS (5)
  1. REMICADE [Suspect]
     Indication: CROHN^S DISEASE
     Route: 042
     Dates: start: 201304
  2. REMICADE [Suspect]
     Indication: CROHN^S DISEASE
     Route: 042
     Dates: start: 2013
  3. LISINOPRIL [Concomitant]
     Indication: HYPERTENSION
     Route: 048
     Dates: start: 2005
  4. XANAX [Concomitant]
     Indication: ANXIETY
     Route: 048
  5. LORATAB [Concomitant]
     Indication: PAIN
     Route: 048
     Dates: start: 2013

REACTIONS (6)
  - Chest pain [Recovered/Resolved]
  - Pollakiuria [Recovered/Resolved]
  - Blood urine present [Recovered/Resolved]
  - Back pain [Recovered/Resolved]
  - Tooth injury [Not Recovered/Not Resolved]
  - Tooth loss [Not Recovered/Not Resolved]
